FAERS Safety Report 9122010 (Version 1)
Quarter: 2013Q1

REPORT INFORMATION
  Report Type: Spontaneous
  Country: US (occurrence: US)
  Receive Date: 20130114
  Receipt Date: 20130114
  Transmission Date: 20140127
  Serious: Yes (Death, Other)
  Sender: FDA-Public Use
  Company Number: US-PFIZER INC-2013012387

PATIENT
  Age: 83 Year
  Sex: Male
  Weight: 63.49 kg

DRUGS (8)
  1. CELEBREX [Suspect]
     Indication: ARTHRITIS
     Dosage: 200 MG, DAILY
     Dates: start: 20120923
  2. CELEBREX [Suspect]
     Indication: PAIN IN EXTREMITY
  3. CELEBREX [Suspect]
     Indication: SKIN DISORDER
  4. PLAVIX [Concomitant]
     Indication: ANTICOAGULANT THERAPY
     Dosage: 75 MG, DAILY
  5. HYDRALAZINE [Concomitant]
     Indication: HYPERTENSION
     Dosage: 25 MG, 2X/DAY
  6. LISINOPRIL [Concomitant]
     Indication: HYPERTENSION
     Dosage: 20 MG, DAILY
  7. ASPIRIN [Concomitant]
     Indication: ANTICOAGULANT THERAPY
     Dosage: 81 MG, DAILY
  8. NOVOLOG MIX 70/30 [Concomitant]
     Indication: DIABETES MELLITUS INADEQUATE CONTROL
     Dosage: 22 IU, 2X/DAY

REACTIONS (4)
  - Death [Fatal]
  - Apparent death [Unknown]
  - Paraesthesia [Unknown]
  - Intentional drug misuse [Unknown]
